FAERS Safety Report 8890284 (Version 1)
Quarter: 2012Q4

REPORT INFORMATION
  Report Type: 
  Country: JP (occurrence: JP)
  Receive Date: 20121107
  Receipt Date: 20121107
  Transmission Date: 20130627
  Serious: Yes (Life-Threatening, Hospitalization)
  Sender: FDA-Public Use
  Company Number: JP-ELI_LILLY_AND_COMPANY-JP201210005765

PATIENT
  Age: 65 Year
  Sex: Female
  Weight: 32 kg

DRUGS (11)
  1. CYMBALTA [Suspect]
     Indication: PAIN
     Dosage: 20 mg, qd
     Route: 048
     Dates: start: 20120618, end: 20120705
  2. TRAMADOL HYDROCHLORIDE AND ACETAMINOPHEN [Concomitant]
     Indication: PAIN
     Dosage: 1 DF, tid
     Route: 048
     Dates: start: 20120319, end: 20120706
  3. TRAMADOL HYDROCHLORIDE AND ACETAMINOPHEN [Concomitant]
     Dosage: UNK
     Route: 048
     Dates: start: 20120723
  4. CODEINE PHOSPHATE [Concomitant]
     Indication: PAIN
     Dosage: 6 g, tid
     Route: 048
     Dates: start: 20101108, end: 20120706
  5. CODEINE PHOSPHATE [Concomitant]
     Dosage: UNK
     Route: 048
     Dates: start: 20120910
  6. RIVOTRIL [Concomitant]
     Indication: PAIN
     Dosage: 0.5 mg, qd
     Route: 048
     Dates: start: 20090824, end: 20120705
  7. PURSENNID [Concomitant]
     Indication: CONSTIPATION
     Dosage: 24 mg, qd
     Route: 048
     Dates: start: 20111219, end: 20120706
  8. PURSENNID [Concomitant]
     Dosage: UNK
     Route: 048
     Dates: start: 20120924
  9. PREDONINE [Concomitant]
     Indication: SYSTEMIC LUPUS ERYTHEMATOSUS
     Dosage: 5 mg, bid
     Route: 048
     Dates: end: 20120706
  10. PREDONINE [Concomitant]
     Dosage: UNK
     Route: 048
  11. INSULIN [Concomitant]
     Indication: DIABETES MELLITUS

REACTIONS (3)
  - Hypoglycaemia [Recovered/Resolved]
  - Dyskinesia [Recovered/Resolved]
  - Off label use [Recovered/Resolved]
